FAERS Safety Report 8823683 (Version 1)
Quarter: 2012Q4

REPORT INFORMATION
  Report Type: 
  Country: US (occurrence: US)
  Receive Date: 20121003
  Receipt Date: 20121003
  Transmission Date: 20130627
  Serious: Yes (Other)
  Sender: FDA-Public Use
  Company Number: US-PFIZER INC-2012244091

PATIENT
  Sex: Female
  Weight: 58.96 kg

DRUGS (1)
  1. LIPITOR [Suspect]
     Dosage: 20 mg, daily in the morning
     Route: 048

REACTIONS (1)
  - Dementia Alzheimer^s type [Unknown]
